FAERS Safety Report 4866697-7 (Version None)
Quarter: 2005Q4

REPORT INFORMATION
  Report Type: 
  Country: None (occurrence: None)
  Receive Date: 20051221
  Receipt Date: 20051209
  Transmission Date: 20060501
  Serious: Yes (Death, Life-Threatening, Hospitalization)
  Sender: FDA-Public Use
  Company Number: APP200500530

PATIENT
  Age: 65 Year
  Sex: Male

DRUGS (10)
  1. VANCOMYCIN HYDROCHLORIDE [Suspect]
     Indication: STAPHYLOCOCCAL BACTERAEMIA
     Dosage: 2 GM (1 GM, 2 IN 1 D), INTRAVENOUS
     Route: 042
     Dates: start: 20040913, end: 20040920
  2. PREDNISONE [Suspect]
     Indication: IMMUNOSUPPRESSION
     Dosage: ORAL
     Route: 048
     Dates: start: 20040902, end: 20041006
  3. SIROLIMUS (SIROLIMUS) [Suspect]
     Indication: IMMUNOSUPPRESSION
     Dosage: ORAL
     Route: 048
     Dates: start: 20040602, end: 20041006
  4. LEVOTHYROXINE SODIUM [Concomitant]
  5. OMEPRAZOLE [Concomitant]
  6. ITRACONAZOLE [Concomitant]
  7. GANCICLOVIR SODIUM [Concomitant]
  8. PRAVASTATIN [Concomitant]
  9. SENNOSIDE A (SENNOSIDE A) [Concomitant]
  10. ALBUMIN (HUMAN) [Concomitant]

REACTIONS (12)
  - ASPERGILLOSIS [None]
  - DRUG INEFFECTIVE [None]
  - ENDOCARDITIS BACTERIAL [None]
  - HAEMOPTYSIS [None]
  - LUNG INFECTION [None]
  - OLIGURIA [None]
  - PLEURAL EFFUSION [None]
  - POST PROCEDURAL COMPLICATION [None]
  - PRODUCTIVE COUGH [None]
  - SEPTIC EMBOLUS [None]
  - SHOCK [None]
  - SUBCUTANEOUS EMPHYSEMA [None]
